FAERS Safety Report 6815670-8 (Version None)
Quarter: 2010Q3

REPORT INFORMATION
  Report Type: 
  Country: None (occurrence: None)
  Receive Date: 20100702
  Receipt Date: 20100625
  Transmission Date: 20110219
  Serious: Yes (Other)
  Sender: FDA-Public Use
  Company Number: US-ABBOTT-10P-163-0642390-00

PATIENT
  Sex: Female
  Weight: 45.4 kg

DRUGS (3)
  1. LUPRON DEPOT [Suspect]
     Indication: ENDOMETRIOSIS
     Route: 030
     Dates: start: 20080801, end: 20090801
  2. LUPRON DEPOT [Suspect]
     Dates: start: 20100201
  3. SYNTHROID [Concomitant]
     Indication: PRODUCT USED FOR UNKNOWN INDICATION

REACTIONS (6)
  - BONE DENSITY DECREASED [None]
  - BONE PAIN [None]
  - CALCIUM DEFICIENCY [None]
  - MUSCULAR WEAKNESS [None]
  - RIB FRACTURE [None]
  - VITAMIN D DEFICIENCY [None]
